FAERS Safety Report 17335183 (Version 4)
Quarter: 2020Q1

REPORT INFORMATION
  Report Type: Spontaneous
  Country: US (occurrence: US)
  Receive Date: 20200128
  Receipt Date: 20200320
  Transmission Date: 20200409
  Serious: Yes (Hospitalization, Other)
  Sender: FDA-Public Use
  Company Number: US-AKCEA THERAPEUTICS-2020IS001046

PATIENT

DRUGS (2)
  1. TEGSEDI [Suspect]
     Active Substance: INOTERSEN SODIUM
     Indication: HEREDITARY NEUROPATHIC AMYLOIDOSIS
     Dosage: 284 MG, QW
     Route: 058
     Dates: end: 2020
  2. TEGSEDI [Suspect]
     Active Substance: INOTERSEN SODIUM
     Dosage: 284 MG, QW
     Route: 058
     Dates: start: 20200308

REACTIONS (8)
  - Hospitalisation [Unknown]
  - Blood urine present [Unknown]
  - Urine protein/creatinine ratio increased [Recovered/Resolved]
  - Thrombocytopenia [Unknown]
  - Nephrolithiasis [Unknown]
  - Urine protein/creatinine ratio abnormal [Recovered/Resolved]
  - Glomerulonephritis [Unknown]
  - Kidney infection [Unknown]
